FAERS Safety Report 19122853 (Version 1)
Quarter: 2021Q2

REPORT INFORMATION
  Report Type: Spontaneous
  Country: US (occurrence: US)
  Receive Date: 20210412
  Receipt Date: 20210412
  Transmission Date: 20210717
  Serious: Yes (Hospitalization, Other)
  Sender: FDA-Public Use
  Company Number: US-MYLANLABS-2021M1021401

PATIENT
  Age: 4 Decade
  Sex: Male

DRUGS (10)
  1. MERCAPTOPURINE. [Suspect]
     Active Substance: MERCAPTOPURINE
     Indication: COLITIS ULCERATIVE
     Dosage: UNK
     Route: 065
  2. ITRACONAZOLE. [Suspect]
     Active Substance: ITRACONAZOLE
     Dosage: 200 MILLIGRAM, BID
     Route: 048
  3. CICLOSPORIN [Suspect]
     Active Substance: CYCLOSPORINE
     Indication: DERMATITIS ATOPIC
     Dosage: UNK
     Route: 065
  4. INFLIXIMAB [Suspect]
     Active Substance: INFLIXIMAB
     Indication: COLITIS ULCERATIVE
     Dosage: UNK
     Route: 065
  5. USTEKINUMAB [Suspect]
     Active Substance: USTEKINUMAB
     Indication: COLITIS ULCERATIVE
     Dosage: UNK
     Route: 065
  6. BALSALAZIDE [Suspect]
     Active Substance: BALSALAZIDE
     Indication: COLITIS ULCERATIVE
     Dosage: UNK
     Route: 065
  7. METHOTREXATE. [Suspect]
     Active Substance: METHOTREXATE
     Indication: DERMATITIS ATOPIC
     Dosage: UNK
     Route: 065
  8. ITRACONAZOLE. [Suspect]
     Active Substance: ITRACONAZOLE
     Indication: HISTOPLASMOSIS DISSEMINATED
     Dosage: 200 MILLIGRAM, TID THREE TIMES A DAY; LOADING DOSE
     Route: 048
  9. VEDOLIZUMAB [Suspect]
     Active Substance: VEDOLIZUMAB
     Indication: COLITIS ULCERATIVE
     Dosage: UNK
     Route: 065
  10. MESALAZINE [Suspect]
     Active Substance: MESALAMINE
     Indication: COLITIS ULCERATIVE
     Dosage: UNK
     Route: 065

REACTIONS (5)
  - Off label use [Unknown]
  - Rash pruritic [Unknown]
  - Histoplasmosis disseminated [Recovering/Resolving]
  - Rash maculo-papular [Unknown]
  - Drug ineffective [Unknown]
